FAERS Safety Report 8310928-8 (Version None)
Quarter: 2012Q2

REPORT INFORMATION
  Report Type: 
  Country: None (occurrence: None)
  Receive Date: 20120425
  Receipt Date: 20120417
  Transmission Date: 20120825
  Serious: No
  Sender: FDA-Public Use
  Company Number: US-BIOGENIDEC-2012BI013157

PATIENT
  Age: 37 Year
  Sex: Male

DRUGS (2)
  1. TYSABRI [Suspect]
     Indication: MULTIPLE SCLEROSIS
     Route: 042
     Dates: start: 20080923, end: 20081208
  2. TYSABRI [Suspect]
     Route: 042
     Dates: start: 20081208

REACTIONS (3)
  - HYPOAESTHESIA [None]
  - MUSCLE TWITCHING [None]
  - PAIN IN EXTREMITY [None]
